FAERS Safety Report 7419817-4 (Version None)
Quarter: 2011Q2

REPORT INFORMATION
  Report Type: 
  Country: None (occurrence: None)
  Receive Date: 20110418
  Receipt Date: 20110402
  Transmission Date: 20111010
  Serious: No
  Sender: FDA-Public Use
  Company Number: US-B.I. PHARMACEUTICALS,INC./RIDGEFIELD-2011-BP-09891BP

PATIENT
  Sex: Male

DRUGS (5)
  1. AMLODIPINE [Concomitant]
     Dosage: 10 MG
     Route: 048
     Dates: start: 20040101
  2. RAMIPRIL [Concomitant]
     Indication: CARDIAC DISORDER
     Dosage: 15 MG
     Route: 048
     Dates: start: 20040101
  3. LIPITOR [Concomitant]
     Dosage: 20 MG
     Route: 048
     Dates: start: 20040101
  4. PRADAXA [Suspect]
     Indication: ATRIAL FIBRILLATION
     Dosage: 300 MG
     Route: 048
     Dates: start: 20110330
  5. CARVEDILOT [Concomitant]
     Indication: CARDIAC DISORDER
     Dosage: 650 MG
     Route: 048
     Dates: start: 20040101

REACTIONS (1)
  - PAIN [None]
